FAERS Safety Report 15116846 (Version 1)
Quarter: 2018Q3

REPORT INFORMATION
  Report Type: Spontaneous
  Country: FR (occurrence: FR)
  Receive Date: 20180706
  Receipt Date: 20180706
  Transmission Date: 20181010
  Serious: Yes (Life-Threatening, Hospitalization, Other)
  Sender: FDA-Public Use
  Company Number: FR-PFIZER INC-2018267856

PATIENT
  Age: 73 Year
  Sex: Male
  Weight: 60 kg

DRUGS (6)
  1. LEVOFOLINATE CALCIUM [Suspect]
     Active Substance: LEVOLEUCOVORIN CALCIUM
     Indication: CHEMOTHERAPY TOXICITY ATTENUATION
     Dosage: 336 MG, 1X/DAY
     Route: 042
     Dates: start: 20180509, end: 20180509
  2. METHYLPREDNISOLONE MYLAN [Concomitant]
     Active Substance: METHYLPREDNISOLONE
     Indication: PROPHYLAXIS OF NAUSEA AND VOMITING
     Dosage: 60 MG, 1X/DAY
     Route: 042
     Dates: start: 20180509, end: 20180509
  3. ONDANSETRON ACCORD [Concomitant]
     Active Substance: ONDANSETRON
     Indication: PROPHYLAXIS OF NAUSEA AND VOMITING
     Dosage: 8 MG, 1X/DAY
     Route: 042
     Dates: start: 20180509, end: 20180509
  4. VECTIBIX [Concomitant]
     Active Substance: PANITUMUMAB
     Indication: CHEMOTHERAPY
     Dosage: 360 MG, 1X/DAY
     Route: 042
     Dates: start: 20180509, end: 20180509
  5. EMEND [Concomitant]
     Active Substance: APREPITANT
     Indication: PROPHYLAXIS OF NAUSEA AND VOMITING
     Dosage: 125 MG, 1X/DAY
     Route: 048
     Dates: start: 20180509, end: 20180509
  6. OXALIPLATIN HOSPIRA [Suspect]
     Active Substance: OXALIPLATIN
     Indication: CHEMOTHERAPY
     Dosage: 145 MG, 1X/DAY
     Route: 042
     Dates: start: 20180509, end: 20180509

REACTIONS (3)
  - Flushing [Recovered/Resolved]
  - Coma [Recovered/Resolved]
  - Anaphylactic shock [Recovered/Resolved]

NARRATIVE: CASE EVENT DATE: 20180509
